FAERS Safety Report 8608448 (Version 3)
Quarter: 2013Q4

REPORT INFORMATION
  Report Type: Spontaneous
  Country: US (occurrence: US)
  Receive Date: 20120611
  Receipt Date: 20131203
  Transmission Date: 20140711
  Serious: Yes (Hospitalization, Disabling)
  Sender: FDA-Public Use
  Company Number: US-ASTRAZENECA-2012SE36051

PATIENT
  Age: 20996 Day
  Sex: Female

DRUGS (13)
  1. NEXIUM [Suspect]
     Indication: GASTROINTESTINAL DISORDER
     Dosage: TWO TIMES A DAY
     Route: 048
  2. NEXIUM [Suspect]
     Indication: GASTROINTESTINAL DISORDER
     Route: 048
     Dates: start: 20081124
  3. PRILOSEC [Suspect]
     Route: 048
  4. ANTACIDS RITE AID [Concomitant]
  5. TENORMIN [Concomitant]
     Route: 048
     Dates: start: 20080716
  6. VASOTEC [Concomitant]
     Dates: start: 20080716
  7. PLENDIL [Concomitant]
     Dates: start: 20080716
  8. SINGULAIR [Concomitant]
     Dates: start: 20080716
  9. OXYCODONE-ACETAMINOPHEN [Concomitant]
     Dates: start: 20080707
  10. TRAZODONE [Concomitant]
     Dates: start: 20080707
  11. CEFADROXIL [Concomitant]
     Dates: start: 20080731
  12. GABAPENTIN [Concomitant]
     Dates: start: 20080816
  13. SKELAXIN [Concomitant]
     Dates: start: 20080731

REACTIONS (15)
  - Vertebral foraminal stenosis [Unknown]
  - Bipolar disorder [Unknown]
  - Back disorder [Unknown]
  - Gastric disorder [Unknown]
  - Osteoporosis [Unknown]
  - Foot fracture [Unknown]
  - Bone density decreased [Unknown]
  - Arthritis [Unknown]
  - Spinal osteoarthritis [Unknown]
  - Intervertebral disc degeneration [Unknown]
  - Intervertebral disc space narrowing [Unknown]
  - Facet joint syndrome [Unknown]
  - Osteoarthritis [Unknown]
  - Meniscus injury [Unknown]
  - Patellofemoral pain syndrome [Unknown]
